FAERS Safety Report 7396961-1 (Version None)
Quarter: 2011Q2

REPORT INFORMATION
  Report Type: 
  Country: None (occurrence: None)
  Receive Date: 20110406
  Receipt Date: 20110325
  Transmission Date: 20111010
  Serious: Yes (Other)
  Sender: FDA-Public Use
  Company Number: US-ASTRAZENECA-2011SE13580

PATIENT
  Age: 69 Year
  Sex: Female

DRUGS (2)
  1. LEVOTHYROXINE [Concomitant]
  2. CRESTOR [Suspect]
     Indication: HYPERCHLORAEMIA
     Route: 048
     Dates: start: 20060101

REACTIONS (8)
  - CARDIAC ASSISTANCE DEVICE USER [None]
  - RENAL DISORDER [None]
  - HYPOTHYROIDISM [None]
  - EXOSTOSIS [None]
  - THYROID DISORDER [None]
  - HYPOAESTHESIA [None]
  - RENAL FAILURE [None]
  - MYALGIA [None]
